FAERS Safety Report 5402601-0 (Version None)
Quarter: 2007Q3

REPORT INFORMATION
  Report Type: 
  Country: None (occurrence: None)
  Receive Date: 20070801
  Receipt Date: 20070223
  Transmission Date: 20080115
  Serious: No
  Sender: FDA-Public Use
  Company Number: A0639576A

PATIENT
  Age: 53 Year
  Sex: Male

DRUGS (8)
  1. IMITREX [Suspect]
     Indication: CLUSTER HEADACHE
     Dosage: 100MG AS REQUIRED
     Route: 048
  2. IMITREX [Suspect]
     Dosage: 50MG AS REQUIRED
     Route: 058
  3. ZOLOFT [Suspect]
  4. INDERAL [Concomitant]
  5. PRILOSEC [Concomitant]
  6. LIPITOR [Concomitant]
  7. TOPAMAX [Concomitant]
  8. PROTONIX [Concomitant]

REACTIONS (7)
  - AFFECT LABILITY [None]
  - ANGER [None]
  - DRUG INTERACTION [None]
  - OFF LABEL USE [None]
  - PERSONALITY CHANGE [None]
  - THERAPEUTIC RESPONSE UNEXPECTED [None]
  - WRONG TECHNIQUE IN DRUG USAGE PROCESS [None]
